FAERS Safety Report 5925918-X (Version None)
Quarter: 2008Q4

REPORT INFORMATION
  Report Type: 
  Country: None (occurrence: None)
  Receive Date: 20081021
  Receipt Date: 20081009
  Transmission Date: 20090506
  Serious: Yes (Other)
  Sender: FDA-Public Use
  Company Number: CO-PFIZER INC-2008086236

PATIENT
  Sex: Female

DRUGS (6)
  1. CHAMPIX [Suspect]
     Indication: SMOKING CESSATION THERAPY
     Route: 048
     Dates: start: 20081002, end: 20081008
  2. DRUG, UNSPECIFIED [Concomitant]
  3. CLOZAPINE [Concomitant]
     Dosage: DAILY DOSE:2.5MG
  4. VALPROIC ACID [Concomitant]
  5. DRUG, UNSPECIFIED [Concomitant]
  6. CLONAZEPAM [Concomitant]

REACTIONS (4)
  - DEHYDRATION [None]
  - DIARRHOEA [None]
  - TONGUE INJURY [None]
  - VOMITING [None]
